FAERS Safety Report 21204615 (Version 1)
Quarter: 2022Q3

REPORT INFORMATION
  Report Type: Spontaneous
  Country: US (occurrence: US)
  Receive Date: 20220812
  Receipt Date: 20220812
  Transmission Date: 20221027
  Serious: No
  Sender: FDA-Public Use
  Company Number: US-GLAXOSMITHKLINE-USCH2022028110

PATIENT
  Sex: Female

DRUGS (2)
  1. GLYCERIN\SORBITOL [Suspect]
     Active Substance: GLYCERIN\SORBITOL
     Indication: Product used for unknown indication
     Dosage: UNK, QOD
  2. GLYCERIN\SORBITOL [Suspect]
     Active Substance: GLYCERIN\SORBITOL
     Dosage: UNK

REACTIONS (3)
  - Hyperaesthesia teeth [Unknown]
  - Condition aggravated [Unknown]
  - Inappropriate schedule of product administration [Unknown]
